FAERS Safety Report 17728991 (Version 1)
Quarter: 2020Q2

REPORT INFORMATION
  Report Type: Spontaneous
  Country: US (occurrence: US)
  Receive Date: 20200429
  Receipt Date: 20200429
  Transmission Date: 20200714
  Serious: Yes (Other)
  Sender: FDA-Public Use
  Company Number: None

PATIENT
  Age: 13 Year
  Sex: Male
  Weight: 37.19 kg

DRUGS (1)
  1. TESTOSTERONE 20.5/1.25 GEL/ 75 GRAMS [Suspect]
     Active Substance: TESTOSTERONE
     Indication: CONGENITAL GENITAL MALFORMATION
     Dosage: 1 PUMP  PER DAY :X 6 DAYS A WEEK;?
     Dates: start: 201606, end: 201909

REACTIONS (2)
  - Therapeutic product effect decreased [None]
  - Blood testosterone decreased [None]

NARRATIVE: CASE EVENT DATE: 20190828
